FAERS Safety Report 23510388 (Version 2)
Quarter: 2024Q1

REPORT INFORMATION
  Report Type: Spontaneous
  Country: US (occurrence: US)
  Receive Date: 20240211
  Receipt Date: 20240219
  Transmission Date: 20240409
  Serious: Yes (Hospitalization, Other)
  Sender: FDA-Public Use
  Company Number: US-BAXTER-2024BAX011988

PATIENT
  Age: 53 Year
  Sex: Male

DRUGS (1)
  1. DIANEAL FOR PERITONEAL DIALYSIS [Suspect]
     Active Substance: ANHYDROUS DEXTROSE\CALCIUM CHLORIDE\MAGNESIUM CHLORIDE\SODIUM CHLORIDE\SODIUM LACTATE
     Route: 065

REACTIONS (12)
  - Liquid product physical issue [Unknown]
  - Peritonitis [Recovering/Resolving]
  - Abdominal distension [Recovering/Resolving]
  - Abdominal pain [Recovering/Resolving]
  - Peritoneal cloudy effluent [Recovering/Resolving]
  - Peritoneal effluent abnormal [Recovering/Resolving]
  - Pyrexia [Recovering/Resolving]
  - Malaise [Unknown]
  - Poor quality product administered [Unknown]
  - Product dose omission issue [Unknown]
  - Product storage error [Unknown]
  - Product colour issue [Unknown]

NARRATIVE: CASE EVENT DATE: 20240127
